FAERS Safety Report 14003592 (Version 1)
Quarter: 2017Q3

REPORT INFORMATION
  Report Type: Spontaneous
  Country: US (occurrence: US)
  Receive Date: 20170922
  Receipt Date: 20170922
  Transmission Date: 20171128
  Serious: Yes (Other)
  Sender: FDA-Public Use
  Company Number: US-CIPLA LTD.-2017US14506

PATIENT

DRUGS (2)
  1. BUPROPION HYDROCHLORIDE XL [Suspect]
     Active Substance: BUPROPION HYDROCHLORIDE
     Dosage: UNK (STRENGTH: 300 MG, MANUFACTURER: CIPLA)
     Route: 065
  2. BUPROPION HYDROCHLORIDE XL [Suspect]
     Active Substance: BUPROPION HYDROCHLORIDE
     Indication: DEPRESSION
     Dosage: UNK (STRENGTH: 200 MG, MANUFACTURER: SANDOZ)
     Route: 065

REACTIONS (3)
  - Product substitution issue [Unknown]
  - Depression [Unknown]
  - Malaise [Unknown]
